FAERS Safety Report 16135526 (Version 1)
Quarter: 2019Q1

REPORT INFORMATION
  Report Type: Spontaneous
  Country: JP (occurrence: JP)
  Receive Date: 20190329
  Receipt Date: 20190329
  Transmission Date: 20190418
  Serious: Yes (Death)
  Sender: FDA-Public Use
  Company Number: JP-MALLINCKRODT-T201901079

PATIENT
  Age: 64 Year
  Sex: Male
  Weight: 74 kg

DRUGS (12)
  1. CALONAL [Concomitant]
     Active Substance: ACETAMINOPHEN
     Indication: PRODUCT USED FOR UNKNOWN INDICATION
     Dosage: 900 MG, TID
     Route: 048
  2. OFIRMEV [Suspect]
     Active Substance: ACETAMINOPHEN
     Indication: CANCER PAIN
     Dosage: 2000 MG, QD
     Route: 042
     Dates: start: 20181218, end: 20190103
  3. MEROPENEM. [Concomitant]
     Active Substance: MEROPENEM
     Indication: BACTERAEMIA
     Dosage: 3 G, QD
     Route: 041
     Dates: start: 20190117, end: 20190124
  4. TAKECAB [Concomitant]
     Active Substance: VONOPRAZAN FUMURATE
     Indication: PRODUCT USED FOR UNKNOWN INDICATION
     Dosage: 20 MG, QD
     Route: 048
     Dates: end: 20190118
  5. SERENACE [Concomitant]
     Active Substance: HALOPERIDOL
     Indication: DELIRIUM
     Dosage: 2.5 MG, QD
     Route: 041
     Dates: end: 20190128
  6. ELNEOPA NO.2 [Concomitant]
     Active Substance: AMINO ACIDS\CARBOHYDRATES\ELECTROLYTES NOS\VITAMINS
     Indication: NUTRITIONAL SUPPLEMENTATION
     Dosage: 2000 ML, QD
     Route: 042
     Dates: end: 20190123
  7. GASTER [Concomitant]
     Active Substance: FAMOTIDINE
     Indication: PRODUCT USED FOR UNKNOWN INDICATION
     Dosage: 20 MG, QD
     Route: 041
     Dates: start: 20190118
  8. URIADEC [Concomitant]
     Active Substance: TOPIROXOSTAT
     Indication: BLOOD URIC ACID ABNORMAL
     Dosage: 40 MG, QD
     Route: 048
     Dates: end: 20190118
  9. OXIFAST [Concomitant]
     Active Substance: OXYCODONE
     Dosage: 60 MG, QD
     Route: 041
     Dates: start: 20181228, end: 20190129
  10. LYRICA [Concomitant]
     Active Substance: PREGABALIN
     Indication: PAIN
     Dosage: 200 MG, QD
     Route: 048
     Dates: end: 20190118
  11. CITRIC ACID [Concomitant]
     Active Substance: CITRIC ACID MONOHYDRATE
     Indication: PRODUCT USED FOR UNKNOWN INDICATION
     Dosage: UNK
     Route: 048
  12. OXIFAST [Concomitant]
     Active Substance: OXYCODONE
     Indication: PAIN
     Dosage: 15 MG, QD
     Route: 041
     Dates: start: 20181226, end: 20181227

REACTIONS (1)
  - Hepatic function abnormal [Fatal]

NARRATIVE: CASE EVENT DATE: 20181230
